FAERS Safety Report 5214271-5 (Version None)
Quarter: 2007Q1

REPORT INFORMATION
  Report Type: 
  Country: None (occurrence: None)
  Receive Date: 20070116
  Receipt Date: 20070106
  Transmission Date: 20070707
  Serious: Yes (Hospitalization)
  Sender: FDA-Public Use
  Company Number: 2007PV027908

PATIENT
  Age: 58 Year
  Sex: Female
  Weight: 63.5036 kg

DRUGS (4)
  1. BYETTA [Suspect]
     Indication: DIABETES MELLITUS NON-INSULIN-DEPENDENT
     Dosage: 10 MCG; BID; SC; SEE IMAGE
     Route: 058
     Dates: start: 20060801, end: 20060901
  2. BYETTA [Suspect]
     Indication: DIABETES MELLITUS NON-INSULIN-DEPENDENT
     Dosage: 10 MCG; BID; SC; SEE IMAGE
     Route: 058
     Dates: start: 20060901, end: 20061214
  3. METFORMIN HCL [Concomitant]
  4. WELCHOL [Concomitant]

REACTIONS (3)
  - POST PROCEDURAL COMPLICATION [None]
  - SMALL INTESTINAL OBSTRUCTION [None]
  - WEIGHT DECREASED [None]
